FAERS Safety Report 20763245 (Version 2)
Quarter: 2023Q1

REPORT INFORMATION
  Report Type: Report from Study
  Country: CO (occurrence: CO)
  Receive Date: 20220428
  Receipt Date: 20230102
  Transmission Date: 20230418
  Serious: Yes (Hospitalization, Other)
  Sender: FDA-Public Use
  Company Number: CO-JNJFOC-20220448258

PATIENT
  Age: 77 Year
  Sex: Male
  Weight: 113 kg

DRUGS (1)
  1. DARATUMUMAB [Suspect]
     Active Substance: DARATUMUMAB
     Indication: Plasma cell myeloma
     Dates: start: 20210723, end: 20220215

REACTIONS (3)
  - Pneumonia [Recovered/Resolved with Sequelae]
  - Hypercapnia [Unknown]
  - Encephalopathy [Unknown]

NARRATIVE: CASE EVENT DATE: 20220316
